FAERS Safety Report 4399983-8 (Version None)
Quarter: 2004Q3

REPORT INFORMATION
  Report Type: 
  Country: None (occurrence: None)
  Receive Date: 20040714
  Receipt Date: 20040702
  Transmission Date: 20050211
  Serious: Yes (Death, Hospitalization)
  Sender: FDA-Public Use
  Company Number: 04P-087-0263537-00

PATIENT
  Age: 84 Year
  Sex: Male

DRUGS (2)
  1. VERAPAMIL [Suspect]
     Indication: VENTRICULAR TACHYCARDIA
     Dosage: 5 MG, 1 IN 1 D, INTRAVENOUS
     Route: 042
     Dates: start: 20030529
  2. PILSICAINIDE (PILSICAINIDE) [Suspect]
     Indication: VENTRICULAR TACHYCARDIA
     Dosage: INTRAVENOUS
     Route: 042
     Dates: start: 20030529, end: 20030529

REACTIONS (18)
  - ACIDOSIS [None]
  - ATRIAL FIBRILLATION [None]
  - BUNDLE BRANCH BLOCK [None]
  - CARDIAC ARREST [None]
  - CHEST DISCOMFORT [None]
  - COLD SWEAT [None]
  - DIABETES MELLITUS [None]
  - DRUG EFFECT DECREASED [None]
  - ELECTROCARDIOGRAM QRS COMPLEX PROLONGED [None]
  - GASTROENTERITIS STAPHYLOCOCCAL [None]
  - INTESTINAL ISCHAEMIA [None]
  - MELAENA [None]
  - MESENTERIC OCCLUSION [None]
  - PNEUMONIA STAPHYLOCOCCAL [None]
  - QRS AXIS ABNORMAL [None]
  - SEPSIS [None]
  - TACHYARRHYTHMIA [None]
  - VENTRICULAR TACHYCARDIA [None]
